FAERS Safety Report 9546497 (Version 2)
Quarter: 2013Q3

REPORT INFORMATION
  Report Type: Spontaneous
  Country: US (occurrence: US)
  Receive Date: 20130923
  Receipt Date: 20130923
  Transmission Date: 20140515
  Serious: No
  Sender: FDA-Public Use
  Company Number: US-ALLERGAN-1111918US

PATIENT
  Sex: Female

DRUGS (1)
  1. ACUVAIL [Suspect]
     Indication: EYE SWELLING
     Dosage: 1 GTT, BID
     Route: 047
     Dates: start: 201108

REACTIONS (1)
  - Lip swelling [Recovered/Resolved]
